FAERS Safety Report 5333181-6 (Version None)
Quarter: 2007Q2

REPORT INFORMATION
  Report Type: 
  Country: None (occurrence: None)
  Receive Date: 20070521
  Receipt Date: 20070521
  Transmission Date: 20071010
  Serious: Yes (Disabling)
  Sender: FDA-Public Use
  Company Number: None

PATIENT
  Age: 74 Year
  Sex: Male
  Weight: 72.5755 kg

DRUGS (10)
  1. CIPROFLOXACIN [Suspect]
     Indication: PROPHYLAXIS
     Dosage: 400MG 1 IV
     Route: 042
     Dates: start: 20070405, end: 20070405
  2. ALBUTEROL [Concomitant]
  3. HEPARIN [Concomitant]
  4. RANITIDINE [Concomitant]
  5. MIDAZOLAM HCL [Concomitant]
  6. ONDANSETRON [Concomitant]
  7. PROPOFOL [Concomitant]
  8. SUCCINYLCHOLINE CHLORIDE [Concomitant]
  9. TRIAMCINOLONE [Concomitant]
  10. VECURONIUM BROMIDE [Concomitant]

REACTIONS (4)
  - ANAPHYLACTIC REACTION [None]
  - ERYTHEMA [None]
  - HYPOTENSION [None]
  - WHEEZING [None]
